FAERS Safety Report 8011344-9 (Version None)
Quarter: 2011Q4

REPORT INFORMATION
  Report Type: 
  Country: None (occurrence: None)
  Receive Date: 20111228
  Receipt Date: 20111221
  Transmission Date: 20120403
  Serious: Yes (Other)
  Sender: FDA-Public Use
  Company Number: US-B.I. PHARMACEUTICALS,INC./RIDGEFIELD-2011-BP-28650BP

PATIENT
  Sex: Female

DRUGS (8)
  1. OMEPRAZOLE [Concomitant]
  2. ADVAIR DISKUS 100/50 [Suspect]
     Indication: EMPHYSEMA
  3. IMATINIB MESYLATE [Suspect]
     Indication: CHEMOTHERAPY
     Route: 048
  4. SPIRIVA [Suspect]
  5. ADVAIR DISKUS 100/50 [Suspect]
     Indication: CHRONIC OBSTRUCTIVE PULMONARY DISEASE
     Dates: start: 20090101
  6. VENLAFAXINE HCL [Concomitant]
  7. TECTURIA [Concomitant]
  8. POTASSIUM CHLORIDE [Concomitant]

REACTIONS (2)
  - EYE DISORDER [None]
  - EYE HAEMORRHAGE [None]
